FAERS Safety Report 10037275 (Version 2)
Quarter: 2014Q1

REPORT INFORMATION
  Report Type: Spontaneous
  Country: US (occurrence: US)
  Receive Date: 20140326
  Receipt Date: 20140326
  Transmission Date: 20141002
  Serious: Yes (Other)
  Sender: FDA-Public Use
  Company Number: US-BAYER-2014-043149

PATIENT
  Sex: Female

DRUGS (3)
  1. YAZ [Suspect]
     Dosage: UNK
     Dates: start: 2008
  2. YASMIN [Suspect]
     Dosage: UNK
     Dates: start: 2008
  3. GIANVI [Suspect]
     Dosage: UNK
     Dates: start: 2008

REACTIONS (6)
  - Deep vein thrombosis [None]
  - Thrombosis [None]
  - Injury [None]
  - Pain [None]
  - Fear of disease [None]
  - Pain [None]
